FAERS Safety Report 10074191 (Version 2)
Quarter: 2014Q2

REPORT INFORMATION
  Report Type: Spontaneous
  Country: US (occurrence: US)
  Receive Date: 20140413
  Receipt Date: 20140413
  Transmission Date: 20141212
  Serious: Yes (Other)
  Sender: FDA-Public Use
  Company Number: US-AMGEN-USASP2014022629

PATIENT
  Age: 69 Year
  Sex: Male
  Weight: 70.75 kg

DRUGS (1)
  1. PROLIA [Suspect]
     Indication: OSTEOPOROSIS
     Dosage: 60 MG, Q6MO
     Route: 058
     Dates: start: 20131204, end: 20140401

REACTIONS (1)
  - Osteonecrosis of jaw [Not Recovered/Not Resolved]
